FAERS Safety Report 25947266 (Version 1)
Quarter: 2025Q4

REPORT INFORMATION
  Report Type: Report from Study
  Country: GB (occurrence: GB)
  Receive Date: 20251022
  Receipt Date: 20251022
  Transmission Date: 20260119
  Serious: Yes (Death)
  Sender: ABBVIE
  Company Number: GB-ABBVIE-6512713

PATIENT
  Age: 57 Year
  Sex: Male

DRUGS (1)
  1. SKYRIZI [Suspect]
     Active Substance: RISANKIZUMAB-RZAA
     Indication: Psoriatic arthropathy
     Dosage: SKYRIZI 150MG/1.0ML
     Route: 058

REACTIONS (1)
  - Death [Fatal]

NARRATIVE: CASE EVENT DATE: 20250801
